FAERS Safety Report 10376472 (Version 1)
Quarter: 2014Q3

REPORT INFORMATION
  Report Type: Spontaneous
  Country: PT (occurrence: PT)
  Receive Date: 20140811
  Receipt Date: 20140811
  Transmission Date: 20150326
  Serious: Yes (Other)
  Sender: FDA-Public Use
  Company Number: PT-PFIZER INC-2014221203

PATIENT
  Sex: Female

DRUGS (1)
  1. ZAVEDOS [Suspect]
     Active Substance: IDARUBICIN
     Indication: LEUKAEMIA
     Dosage: UNK
     Dates: start: 2006

REACTIONS (2)
  - Second primary malignancy [Unknown]
  - Breast neoplasm [Unknown]

NARRATIVE: CASE EVENT DATE: 2014
